FAERS Safety Report 11051104 (Version 3)
Quarter: 2015Q2

REPORT INFORMATION
  Report Type: Spontaneous
  Country: US (occurrence: US)
  Receive Date: 20150421
  Receipt Date: 20150618
  Transmission Date: 20150821
  Serious: Yes (Death, Other)
  Sender: FDA-Public Use
  Company Number: US-TAKEDA-2015MPI002486

PATIENT
  Sex: Female

DRUGS (21)
  1. RAPAMUNE [Suspect]
     Active Substance: SIROLIMUS
     Indication: PLASMA CELL MYELOMA
     Route: 065
  2. ATIVAN [Concomitant]
     Active Substance: LORAZEPAM
  3. VANCOMYCIN [Concomitant]
     Active Substance: VANCOMYCIN
  4. MECLIZINE [Concomitant]
     Active Substance: MECLIZINE\MECLIZINE HYDROCHLORIDE
  5. CYCLOPHOSPHAMIDE. [Suspect]
     Active Substance: CYCLOPHOSPHAMIDE
     Indication: PLASMA CELL MYELOMA
     Route: 065
  6. METOPROLOL [Concomitant]
     Active Substance: METOPROLOL
  7. FENTANYL. [Concomitant]
     Active Substance: FENTANYL
  8. DECADRON [Concomitant]
     Active Substance: DEXAMETHASONE
  9. VELCADE [Suspect]
     Active Substance: BORTEZOMIB
     Indication: PLASMA CELL MYELOMA
     Route: 065
  10. FARYDAK [Suspect]
     Active Substance: PANOBINOSTAT
     Indication: PLASMA CELL MYELOMA
     Dosage: 20 MG, UNK
     Route: 048
     Dates: start: 20150302
  11. FLUCONAZOLE. [Concomitant]
     Active Substance: FLUCONAZOLE
  12. ZOFRAN                             /00955301/ [Concomitant]
     Active Substance: ONDANSETRON HYDROCHLORIDE
  13. AMLODIPINE [Concomitant]
     Active Substance: AMLODIPINE BESYLATE
  14. DEXAMETHASONE. [Suspect]
     Active Substance: DEXAMETHASONE
     Indication: PLASMA CELL MYELOMA
     Route: 065
  15. ESTRADIOL. [Concomitant]
     Active Substance: ESTRADIOL
  16. PROTONIX [Concomitant]
     Active Substance: PANTOPRAZOLE SODIUM
  17. LIDODERM [Concomitant]
     Active Substance: LIDOCAINE
  18. ACYCLOVIR                          /00587301/ [Concomitant]
     Active Substance: ACYCLOVIR
  19. TRAMADOL [Concomitant]
     Active Substance: TRAMADOL
  20. BUDESONIDE. [Concomitant]
     Active Substance: BUDESONIDE
  21. SYNTHROID [Concomitant]
     Active Substance: LEVOTHYROXINE SODIUM

REACTIONS (2)
  - Plasma cell myeloma [Fatal]
  - Encephalopathy [Fatal]
